FAERS Safety Report 13313099 (Version 1)
Quarter: 2017Q1

REPORT INFORMATION
  Report Type: Report from Study
  Country: US (occurrence: HU)
  Receive Date: 20170309
  Receipt Date: 20170309
  Transmission Date: 20170428
  Serious: Yes (Death, Other)
  Sender: FDA-Public Use
  Company Number: US-SUNOVION-2017SUN001054

PATIENT

DRUGS (14)
  1. KLACID [Concomitant]
     Active Substance: CLARITHROMYCIN
     Dosage: UNK
  2. INDACATEROL AND GLYCOPYRROLATE [Suspect]
     Active Substance: GLYCOPYRROLATE\INDACATEROL MALEATE
     Indication: CHRONIC OBSTRUCTIVE PULMONARY DISEASE
     Dosage: UNK; 1X1 (IN THE MORNING)
     Route: 055
     Dates: start: 20170202
  3. DIAPREL [Concomitant]
     Active Substance: GLICLAZIDE
     Dosage: UNK
  4. DUROGESIC [Concomitant]
     Active Substance: FENTANYL
     Dosage: UNK
  5. VENTOLIN [Concomitant]
     Active Substance: ALBUTEROL SULFATE
     Dosage: UNK
  6. LYRICA [Concomitant]
     Active Substance: PREGABALIN
     Dosage: UNK
  7. LENDACIN [Concomitant]
     Active Substance: CEFTRIAXONE SODIUM
     Dosage: UNK
  8. CO-RENITEC [Concomitant]
     Active Substance: ENALAPRIL\HYDROCHLOROTHIAZIDE
     Dosage: UNK
  9. CONTROLOC [Concomitant]
     Active Substance: PANTOPRAZOLE SODIUM
     Dosage: UNK
  10. KLION [Concomitant]
     Dosage: UNK
  11. RENITEC [Concomitant]
     Active Substance: ENALAPRIL MALEATE
     Dosage: UNK
  12. SMECTA [Concomitant]
     Active Substance: MONTMORILLONITE
     Dosage: UNK
  13. OXYGEN. [Concomitant]
     Active Substance: OXYGEN
     Dosage: UNK
  14. TIAPRIDAL [Concomitant]
     Active Substance: TIAPRIDE HYDROCHLORIDE
     Dosage: UNK

REACTIONS (15)
  - Blood alkaline phosphatase increased [Unknown]
  - Amylase increased [Unknown]
  - Blood creatinine increased [Unknown]
  - Prothrombin time prolonged [Unknown]
  - Respiratory failure [Unknown]
  - Lipase increased [Unknown]
  - Haemoglobin decreased [Unknown]
  - Red cell distribution width increased [Unknown]
  - Glomerular filtration rate decreased [Unknown]
  - Blood potassium increased [Unknown]
  - Platelet count decreased [Unknown]
  - Haematocrit decreased [Unknown]
  - Gamma-glutamyltransferase increased [Unknown]
  - Pneumonia [Fatal]
  - Lymphocyte count decreased [Unknown]
